FAERS Safety Report 6318002-7 (Version None)
Quarter: 2009Q3

REPORT INFORMATION
  Report Type: 
  Country: None (occurrence: None)
  Receive Date: 20090821
  Receipt Date: 20090812
  Transmission Date: 20100115
  Serious: Yes (Hospitalization)
  Sender: FDA-Public Use
  Company Number: DE-PFIZER INC-2009254129

PATIENT
  Age: 69 Year

DRUGS (9)
  1. IRINOTECAN HCL [Suspect]
     Indication: COLORECTAL CANCER METASTATIC
     Dosage: 265 MG, 1X EVERY 2 WEEKS
     Route: 042
     Dates: start: 20080627
  2. CETUXIMAB [Suspect]
     Indication: COLORECTAL CANCER METASTATIC
     Dosage: 370 MG, WEEKLY
     Route: 042
     Dates: start: 20080627
  3. FLUOROURACIL [Suspect]
     Indication: COLORECTAL CANCER METASTATIC
     Dosage: 590 MG, 1XEVERY 2 WEEKS
     Route: 040
     Dates: start: 20080627
  4. FLUOROURACIL [Suspect]
     Dosage: 3500 MG, 1XEVERY 2 WEEKS
     Route: 042
     Dates: start: 20080627
  5. FOLINIC ACID [Suspect]
     Indication: COLORECTAL CANCER METASTATIC
     Dosage: 590 MG, 1XEVERY 2 WEEKS
     Route: 042
     Dates: start: 20080627
  6. PANTOZOL [Concomitant]
     Dosage: 20 MG, 1X/DAY
     Route: 048
  7. EUTHYROX [Concomitant]
     Dosage: 100 MG, 1X/DAY
     Route: 048
  8. METOCLOPRAMIDE HYDROCHLORIDE [Concomitant]
     Dosage: UNK
     Route: 048
  9. VERGENTAN [Concomitant]
     Dosage: UNK
     Route: 048

REACTIONS (1)
  - UROSEPSIS [None]
